FAERS Safety Report 24148093 (Version 1)
Quarter: 2024Q3

REPORT INFORMATION
  Report Type: Spontaneous
  Country: US (occurrence: US)
  Receive Date: 20240729
  Receipt Date: 20240729
  Transmission Date: 20241017
  Serious: No
  Sender: SANOFI AVENTIS
  Company Number: US-SA-SAC20240725000395

PATIENT
  Sex: Female
  Weight: 86.1 kg

DRUGS (6)
  1. DUPIXENT [Suspect]
     Active Substance: DUPILUMAB
     Indication: Dermatitis atopic
     Dosage: 300 MG, QOW
     Route: 058
  2. XYZAL [Concomitant]
     Active Substance: LEVOCETIRIZINE DIHYDROCHLORIDE
  3. HYDROCORTISONE [Concomitant]
     Active Substance: HYDROCORTISONE\HYDROCORTISONE ACETATE
  4. TACROLIMUS [Concomitant]
     Active Substance: TACROLIMUS
  5. SOOLANTRA [Concomitant]
     Active Substance: IVERMECTIN
  6. LORATADINE [Concomitant]
     Active Substance: LORATADINE

REACTIONS (1)
  - Rash erythematous [Unknown]
